FAERS Safety Report 4276157-2 (Version None)
Quarter: 2004Q1

REPORT INFORMATION
  Report Type: 
  Country: None (occurrence: None)
  Receive Date: 20040121
  Receipt Date: 20031117
  Transmission Date: 20041129
  Serious: No
  Sender: FDA-Public Use
  Company Number: US-GLAXOSMITHKLINE-A0440003A

PATIENT
  Age: 37 Year
  Sex: Female

DRUGS (3)
  1. VALTREX [Suspect]
     Dosage: 2G TWICE PER DAY
     Route: 048
     Dates: start: 20031109, end: 20031110
  2. ORTHO TRI-CYCLEN [Concomitant]
  3. BENADRYL [Concomitant]

REACTIONS (3)
  - EYE SWELLING [None]
  - NASAL DISCOMFORT [None]
  - RASH [None]
